FAERS Safety Report 8488040-7 (Version None)
Quarter: 2012Q3

REPORT INFORMATION
  Report Type: 
  Country: None (occurrence: None)
  Receive Date: 20120705
  Receipt Date: 20120622
  Transmission Date: 20120928
  Serious: Yes (Hospitalization)
  Sender: FDA-Public Use
  Company Number: FR-CELGENEUS-056-21880-11112622

PATIENT
  Sex: Female
  Weight: 93.8 kg

DRUGS (2)
  1. FOSFOCINE [Concomitant]
     Dosage: 12 GRAM
     Route: 065
     Dates: start: 20111213, end: 20111214
  2. REVLIMID [Suspect]
     Dosage: 10 MILLIGRAM
     Route: 048
     Dates: start: 20111104, end: 20111113

REACTIONS (7)
  - DIARRHOEA [None]
  - ESCHERICHIA URINARY TRACT INFECTION [None]
  - PURPURA [None]
  - DECREASED APPETITE [None]
  - OESOPHAGEAL CANDIDIASIS [None]
  - PROCTOCOLITIS [None]
  - STAPHYLOCOCCAL BACTERAEMIA [None]
